FAERS Safety Report 10970097 (Version 2)
Quarter: 2015Q1

REPORT INFORMATION
  Report Type: Spontaneous
  Country: US (occurrence: None)
  Receive Date: 20150226
  Receipt Date: 20150226
  Transmission Date: 20150721
  Serious: No
  Sender: FDA-Public Use
  Company Number: TPA2009A01597

PATIENT
  Age: 60 Year
  Sex: Female
  Weight: 74.84 kg

DRUGS (12)
  1. ULORIC [Suspect]
     Active Substance: FEBUXOSTAT
     Indication: HYPERURICAEMIA
     Dosage: 1 IN 1 D
     Route: 048
     Dates: start: 20090403, end: 20090410
  2. ULORIC [Suspect]
     Active Substance: FEBUXOSTAT
     Indication: GOUT
     Dosage: 1 IN 1 D
     Route: 048
     Dates: start: 20090403, end: 20090410
  3. TRICOR [Concomitant]
     Active Substance: FENOFIBRATE
  4. REGLAN (METOCLOPRAMIDE HYDROCHLORIDE) [Concomitant]
  5. NITRO (GLYCERYL TRINITRATE) [Concomitant]
  6. COLCHICINE. [Concomitant]
     Active Substance: COLCHICINE
  7. NEXIUM [Concomitant]
     Active Substance: ESOMEPRAZOLE MAGNESIUM
  8. PLAVIX [Concomitant]
     Active Substance: CLOPIDOGREL BISULFATE
  9. FOLIC ACID. [Concomitant]
     Active Substance: FOLIC ACID
  10. LOPRESOR (METOPROLOL TARTRATE) [Concomitant]
  11. PRAVACHOL (PRAVASTATIN SODIUM) [Concomitant]
  12. FISH OIL [Concomitant]
     Active Substance: FISH OIL

REACTIONS (2)
  - Pruritus [None]
  - Rash generalised [None]
